FAERS Safety Report 20247153 (Version 6)
Quarter: 2024Q4

REPORT INFORMATION
  Report Type: Spontaneous
  Country: US (occurrence: US)
  Receive Date: 20211229
  Receipt Date: 20241031
  Transmission Date: 20250114
  Serious: Yes (Other)
  Sender: PFIZER
  Company Number: US-PFIZER INC-2021606403

PATIENT
  Age: 61 Year
  Sex: Female
  Weight: 58.97 kg

DRUGS (11)
  1. IBRANCE [Suspect]
     Active Substance: PALBOCICLIB
     Indication: Neoplasm malignant
     Dosage: 125 MG
  2. IBRANCE [Suspect]
     Active Substance: PALBOCICLIB
     Indication: Breast cancer metastatic
     Dosage: UNK
  3. IBRANCE [Suspect]
     Active Substance: PALBOCICLIB
     Dosage: ONCE A DAY FOR 21 DAYS, 7 DAYS OFF
     Dates: start: 20210715
  4. IBRANCE [Suspect]
     Active Substance: PALBOCICLIB
     Dosage: 100 MG
  5. IBRANCE [Suspect]
     Active Substance: PALBOCICLIB
     Dosage: ONCE A DAY FOR 21 DAYS AND OFF FOR SEVEN DAYS
  6. IBRANCE [Suspect]
     Active Substance: PALBOCICLIB
     Dosage: 150 MG, CYCLIC(21 DAYS ON AND SEVEN DAYS OFF)
     Route: 048
  7. IBRANCE [Suspect]
     Active Substance: PALBOCICLIB
     Dosage: 75 MILLIGRAMS, 21 DAYS ON, 7 DAYS OFF.
     Dates: start: 2021
  8. TAXOL [Concomitant]
     Active Substance: PACLITAXEL
     Indication: Breast cancer female
     Dosage: UNK
     Dates: end: 201603
  9. CISPLATIN [Concomitant]
     Active Substance: CISPLATIN
     Indication: Breast cancer female
     Dosage: UNK
     Dates: end: 201603
  10. ADRIAMYCIN [Concomitant]
     Active Substance: DOXORUBICIN HYDROCHLORIDE
     Indication: Breast cancer female
     Dosage: UNK
     Dates: end: 201602
  11. LEVOTHYROXINE [Concomitant]
     Active Substance: LEVOTHYROXINE
     Indication: Thyroid disorder
     Dosage: 20 MCG

REACTIONS (15)
  - Neuropathy peripheral [Unknown]
  - Asthenia [Unknown]
  - Platelet count decreased [Not Recovered/Not Resolved]
  - Neutrophil count decreased [Recovered/Resolved]
  - White blood cell count decreased [Not Recovered/Not Resolved]
  - Vomiting [Recovered/Resolved]
  - Nausea [Recovered/Resolved]
  - Skin exfoliation [Recovering/Resolving]
  - Dyspepsia [Recovering/Resolving]
  - Full blood count abnormal [Recovering/Resolving]
  - Red blood cell count abnormal [Recovered/Resolved]
  - Hunger [Unknown]
  - Nausea [Unknown]
  - Fatigue [Unknown]
  - Off label use [Unknown]

NARRATIVE: CASE EVENT DATE: 20160201
